FAERS Safety Report 9306324 (Version 1)
Quarter: 2013Q2

REPORT INFORMATION
  Report Type: Spontaneous
  Country: CA (occurrence: None)
  Receive Date: 20130520
  Receipt Date: 20130520
  Transmission Date: 20140414
  Serious: Yes (Hospitalization, Other)
  Sender: FDA-Public Use
  Company Number: 2013-001510

PATIENT
  Age: 83 Year
  Sex: Female

DRUGS (2)
  1. ACTONEL [Suspect]
     Indication: OSTEOPOROSIS
     Route: 048
     Dates: start: 2000, end: 2008
  2. ANTIHYPERTENSIVES [Concomitant]

REACTIONS (6)
  - Hepatic cancer [None]
  - Osteonecrosis of jaw [None]
  - Splenomegaly [None]
  - Oesophageal disorder [None]
  - Gastrointestinal disorder [None]
  - Red blood cell count decreased [None]
